FAERS Safety Report 6799039-0 (Version None)
Quarter: 2010Q2

REPORT INFORMATION
  Report Type: 
  Country: None (occurrence: None)
  Receive Date: 20100623
  Receipt Date: 20100621
  Transmission Date: 20101027
  Serious: Yes (Life-Threatening, Hospitalization, Other)
  Sender: FDA-Public Use
  Company Number: 2010SP023349

PATIENT
  Age: 63 Year
  Sex: Female
  Weight: 57 kg

DRUGS (10)
  1. TEMOZOLOMIDE [Suspect]
     Indication: GLIOBLASTOMA MULTIFORME
     Dosage: PO
     Route: 048
     Dates: start: 20100302, end: 20100328
  2. ABT-888 [Suspect]
     Indication: GLIOBLASTOMA MULTIFORME
     Dosage: 10 MG, QD;PO, 10 MG;BID;PO
     Route: 048
     Dates: start: 20100301, end: 20100301
  3. ABT-888 [Suspect]
     Indication: GLIOBLASTOMA MULTIFORME
     Dosage: 10 MG, QD;PO, 10 MG;BID;PO
     Route: 048
     Dates: start: 20100302, end: 20100328
  4. DUCOSATE SODIUM (CON.) [Concomitant]
  5. OXYCODONE (CON.) [Concomitant]
  6. DEXAMETHASONE (CON.) [Concomitant]
  7. LANSOPRAZOLE (CON.) [Concomitant]
  8. ZOLPIDEM TARTRATE (CON.) [Concomitant]
  9. ACETYLSALICYLIC ACID (CON.) [Concomitant]
  10. DEXAMETHASONE (CON.) [Concomitant]

REACTIONS (9)
  - ARTHRALGIA [None]
  - BONE PAIN [None]
  - DRUG INEFFECTIVE [None]
  - FEBRILE NEUTROPENIA [None]
  - HAEMOGLOBIN DECREASED [None]
  - LIVER FUNCTION TEST ABNORMAL [None]
  - REFUSAL OF TREATMENT BY PATIENT [None]
  - THROMBOCYTOPENIA [None]
  - WHITE BLOOD CELL COUNT DECREASED [None]
